FAERS Safety Report 16702662 (Version 16)
Quarter: 2020Q4

REPORT INFORMATION
  Report Type: Spontaneous
  Country: US (occurrence: US)
  Receive Date: 20190814
  Receipt Date: 20201119
  Transmission Date: 20210113
  Serious: Yes (Other)
  Sender: FDA-Public Use
  Company Number: US-PFIZER INC-2019346755

PATIENT
  Age: 77 Year
  Sex: Female

DRUGS (2)
  1. IBRANCE [Suspect]
     Active Substance: PALBOCICLIB
     Indication: BREAST CANCER FEMALE
     Dosage: 75 MG, CYCLIC (DAILY FOR 21 DAYS ON, 14 DAYS OFF; 3 OUT 5 WEEKS)
  2. IBRANCE [Suspect]
     Active Substance: PALBOCICLIB
     Dosage: 100 MG, UNK

REACTIONS (14)
  - Fatigue [Unknown]
  - Blood count abnormal [Unknown]
  - Liver disorder [Unknown]
  - Dyspnoea [Not Recovered/Not Resolved]
  - Thyroid disorder [Unknown]
  - Malaise [Unknown]
  - Foreign body in throat [Unknown]
  - Anxiety [Unknown]
  - Oral pain [Unknown]
  - Decreased appetite [Unknown]
  - Oxygen saturation decreased [Unknown]
  - Weight decreased [Unknown]
  - Eating disorder [Unknown]
  - Chest discomfort [Unknown]
